FAERS Safety Report 4720558-2 (Version None)
Quarter: 2005Q3

REPORT INFORMATION
  Report Type: 
  Country: None (occurrence: None)
  Receive Date: 20050719
  Receipt Date: 20050701
  Transmission Date: 20060218
  Serious: Yes (Hospitalization, Other)
  Sender: FDA-Public Use
  Company Number: USA0507101833

PATIENT
  Sex: Female

DRUGS (17)
  1. FORTEO [Suspect]
     Dosage: 20 UG/1 DAY
     Dates: start: 20050523
  2. HUMALOG [Suspect]
     Indication: DIABETES MELLITUS INSULIN-DEPENDENT
  3. PREVACID [Concomitant]
  4. CALCIUM GLUCONATE [Concomitant]
  5. POTASSIUM CHLORIDE [Concomitant]
  6. MORPHINE [Concomitant]
  7. PREDNISONE [Concomitant]
  8. LEXAPRO [Concomitant]
  9. COUMADIN [Concomitant]
  10. ANTIOXIDANT [Concomitant]
  11. SPIRONOLACTONE [Concomitant]
  12. ZAROXOLYN [Concomitant]
  13. AMBIEN [Concomitant]
  14. LANTUS [Concomitant]
  15. REGLAN [Concomitant]
  16. DOCUSATE [Concomitant]
  17. DEMADEX [Concomitant]

REACTIONS (13)
  - ANEURYSM [None]
  - BLOOD GLUCOSE DECREASED [None]
  - BLOOD GLUCOSE INCREASED [None]
  - CARDIAC FAILURE CONGESTIVE [None]
  - CONSTIPATION [None]
  - DIZZINESS [None]
  - DYSPEPSIA [None]
  - EATING DISORDER [None]
  - GASTRIC DISORDER [None]
  - GOUT [None]
  - NAUSEA [None]
  - POLYMYALGIA [None]
  - VOMITING [None]
